FAERS Safety Report 7366627-2 (Version None)
Quarter: 2011Q1

REPORT INFORMATION
  Report Type: 
  Country: None (occurrence: None)
  Receive Date: 20110225
  Receipt Date: 20101013
  Transmission Date: 20110831
  Serious: No
  Sender: FDA-Public Use
  Company Number: 316784

PATIENT
  Age: 41 Year
  Sex: Female

DRUGS (4)
  1. VICTOZA [Suspect]
     Indication: TYPE 2 DIABETES MELLITUS
     Dosage: 1.8 MG, QD, SUBCUTANEOUS, SUBCUTANEOUS
     Route: 058
     Dates: start: 20100510, end: 20100908
  2. VICTOZA [Suspect]
     Indication: OBESITY
     Dosage: 1.8 MG, QD, SUBCUTANEOUS, SUBCUTANEOUS
     Route: 058
     Dates: start: 20100510, end: 20100908
  3. VICTOZA [Suspect]
     Indication: TYPE 2 DIABETES MELLITUS
     Dosage: 1.8 MG, QD, SUBCUTANEOUS, SUBCUTANEOUS
     Route: 058
     Dates: start: 20101013
  4. VICTOZA [Suspect]
     Indication: OBESITY
     Dosage: 1.8 MG, QD, SUBCUTANEOUS, SUBCUTANEOUS
     Route: 058
     Dates: start: 20101013

REACTIONS (5)
  - ABDOMINAL PAIN UPPER [None]
  - HEADACHE [None]
  - MALAISE [None]
  - INSOMNIA [None]
  - NAUSEA [None]
